FAERS Safety Report 4620887-7 (Version None)
Quarter: 2005Q1

REPORT INFORMATION
  Report Type: 
  Country: None (occurrence: None)
  Receive Date: 20050325
  Receipt Date: 20050315
  Transmission Date: 20050727
  Serious: Yes (Hospitalization, Other)
  Sender: FDA-Public Use
  Company Number: 2005045298

PATIENT
  Age: 50 Year
  Sex: Male
  Weight: 86.1834 kg

DRUGS (3)
  1. BEXTRA [Suspect]
     Indication: BACK DISORDER
     Dosage: 20 MG (20 MG, 1 IN 1 D); ORAL
     Route: 048
     Dates: start: 20030101
  2. CLONAZEPAM [Concomitant]
  3. RABEPRAZOLE SODIUM [Concomitant]

REACTIONS (2)
  - INTERVERTEBRAL DISC PROTRUSION [None]
  - SURGERY [None]
